FAERS Safety Report 10149919 (Version 1)
Quarter: 2014Q2

REPORT INFORMATION
  Report Type: Spontaneous
  Country: US (occurrence: None)
  Receive Date: 20140501
  Receipt Date: 20140501
  Transmission Date: 20141212
  Serious: No
  Sender: FDA-Public Use
  Company Number: None

PATIENT
  Sex: 0

DRUGS (2)
  1. RISPERDAL [Suspect]
  2. SEROQUEL [Suspect]

REACTIONS (11)
  - Breast discharge [None]
  - Nipple pain [None]
  - Nipple disorder [None]
  - Weight increased [None]
  - Suicide attempt [None]
  - Intentional self-injury [None]
  - Abdominal distension [None]
  - Skin atrophy [None]
  - Dysphonia [None]
  - Deformity [None]
  - Depression [None]
